FAERS Safety Report 4539066-7 (Version None)
Quarter: 2004Q4

REPORT INFORMATION
  Report Type: 
  Country: None (occurrence: None)
  Receive Date: 20041222
  Receipt Date: 20041210
  Transmission Date: 20050328
  Serious: Yes (Other)
  Sender: FDA-Public Use
  Company Number: 2004UW25299

PATIENT

DRUGS (1)
  1. DIPRIVAN [Suspect]
     Dosage: 20 ML IV
     Route: 042

REACTIONS (5)
  - ACCIDENTAL OVERDOSE [None]
  - COMA [None]
  - HYPOTENSION [None]
  - MEDICAL DEVICE COMPLICATION [None]
  - MEDICATION ERROR [None]
